FAERS Safety Report 5491803-3 (Version None)
Quarter: 2007Q4

REPORT INFORMATION
  Report Type: 
  Country: None (occurrence: None)
  Receive Date: 20071022
  Receipt Date: 20071017
  Transmission Date: 20080405
  Serious: Yes (Hospitalization)
  Sender: FDA-Public Use
  Company Number: AU-BRISTOL-MYERS SQUIBB COMPANY-13946140

PATIENT
  Age: 50 Year
  Sex: Female
  Weight: 65 kg

DRUGS (6)
  1. CYCLOPHOSPHAMIDE [Suspect]
     Dates: start: 20070301, end: 20070801
  2. DOXORUBICIN HCL [Suspect]
     Dates: start: 20070301, end: 20070801
  3. NEULASTA [Suspect]
     Indication: CHEMOTHERAPY
     Route: 058
     Dates: start: 20070301, end: 20070801
  4. DOCETAXEL [Suspect]
     Dates: start: 20070301, end: 20070801
  5. NAVOBAN [Concomitant]
     Dates: start: 20070301, end: 20070801
  6. DEXAMETHASONE 0.5MG TAB [Concomitant]
     Dates: start: 20070301, end: 20070801

REACTIONS (1)
  - PNEUMONITIS [None]
